FAERS Safety Report 21729285 (Version 1)
Quarter: 2022Q4

REPORT INFORMATION
  Report Type: Spontaneous
  Country: AT (occurrence: AT)
  Receive Date: 20221214
  Receipt Date: 20221214
  Transmission Date: 20230113
  Serious: No
  Sender: FDA-Public Use
  Company Number: AT-009507513-2212AUT002739

PATIENT
  Age: 91 Year
  Sex: Female

DRUGS (1)
  1. LAGEVRIO [Suspect]
     Active Substance: MOLNUPIRAVIR
     Indication: COVID-19 treatment
     Dosage: 4 CAPSULES
     Route: 048
     Dates: start: 20221204

REACTIONS (4)
  - Erythema [Unknown]
  - Swelling face [Unknown]
  - Feeling abnormal [Unknown]
  - Product use in unapproved indication [Unknown]

NARRATIVE: CASE EVENT DATE: 20221204
